FAERS Safety Report 4506703-2 (Version None)
Quarter: 2004Q4

REPORT INFORMATION
  Report Type: 
  Country: None (occurrence: None)
  Receive Date: 20041122
  Receipt Date: 20041111
  Transmission Date: 20050328
  Serious: Yes (Other)
  Sender: FDA-Public Use
  Company Number: GB-MERCK-0411GBR00128

PATIENT
  Sex: Female

DRUGS (2)
  1. VIOXX [Suspect]
     Indication: ARTHRITIS
     Route: 048
     Dates: start: 20030401
  2. VIOXX [Suspect]
     Indication: JOINT INJURY
     Route: 048
     Dates: start: 20030401

REACTIONS (2)
  - DEAFNESS [None]
  - TRANSIENT ISCHAEMIC ATTACK [None]
